FAERS Safety Report 7733178-2 (Version None)
Quarter: 2011Q3

REPORT INFORMATION
  Report Type: 
  Country: None (occurrence: None)
  Receive Date: 20110902
  Receipt Date: 20110902
  Transmission Date: 20111222
  Serious: No
  Sender: FDA-Public Use
  Company Number: None

PATIENT
  Age: 70 Year
  Sex: Female
  Weight: 76.2043 kg

DRUGS (1)
  1. SIMVASTATIN [Suspect]
     Indication: BLOOD CHOLESTEROL
     Dosage: 1 BEDTIME
     Dates: start: 20110101

REACTIONS (4)
  - PRURITUS [None]
  - URINARY TRACT INFECTION [None]
  - PRODUCT SUBSTITUTION ISSUE [None]
  - PAIN [None]
